FAERS Safety Report 13739393 (Version 7)
Quarter: 2019Q4

REPORT INFORMATION
  Report Type: Report from Study
  Country: KR (occurrence: KR)
  Receive Date: 20170711
  Receipt Date: 20191210
  Transmission Date: 20200122
  Serious: Yes (Life-Threatening, Other)
  Sender: FDA-Public Use
  Company Number: KR-009507513-1707KOR000589

PATIENT
  Age: 68 Year
  Sex: Male
  Weight: 78.2 kg

DRUGS (20)
  1. DENOGAN [Concomitant]
     Active Substance: PROPACETAMOL HYDROCHLORIDE
     Indication: PYREXIA
     Dosage: 1 G, QD
     Route: 042
     Dates: start: 20170626, end: 20170702
  2. PENZAL (ACETAMINOPHEN (+) CAFFEINE (+) DEANOL TARTRATE (+) PROPYPHENAZ [Concomitant]
     Indication: PYREXIA
     Dosage: 650 MG, TID
     Route: 048
     Dates: start: 20170626
  3. MYONAL (EPERISONE HYDROCHLORIDE) [Concomitant]
     Active Substance: EPERISONE HYDROCHLORIDE
     Indication: CEREBROVASCULAR ACCIDENT
     Dosage: 50 MILLIGRAM, QD
     Route: 048
     Dates: start: 20170627, end: 20170630
  4. POSACONAZOLE [Suspect]
     Active Substance: POSACONAZOLE
     Dosage: 300 MILLIGRAM, QD
     Route: 048
     Dates: start: 20170629, end: 20170629
  5. ATROVENT [Concomitant]
     Active Substance: IPRATROPIUM BROMIDE
     Indication: CHRONIC OBSTRUCTIVE PULMONARY DISEASE
     Dosage: 500 MICROGRAM, QID. FORMULATION: SOLUTION 500 MCG/2ML
     Dates: start: 20170627
  6. TENORMIN [Concomitant]
     Active Substance: ATENOLOL
     Indication: HYPERTENSION
     Dosage: 25 MILLIGRAM, QD
     Route: 048
     Dates: start: 20170627, end: 20170630
  7. OROSARTAN [Concomitant]
     Indication: HYPERTENSION
     Dosage: 1 TABLET, QD
     Route: 048
     Dates: start: 20170627, end: 20170630
  8. VANCOMYCIN HYDROCHLORIDE. [Concomitant]
     Active Substance: VANCOMYCIN HYDROCHLORIDE
     Indication: PYREXIA
  9. PENIRAMIN [Concomitant]
     Indication: PROPHYLAXIS
     Dosage: 2 ML, QD
     Route: 042
     Dates: start: 20170626
  10. LASIX [Concomitant]
     Active Substance: FUROSEMIDE
     Indication: FLUID OVERLOAD
     Dosage: 20 MILLIGRAM, QD
     Route: 042
     Dates: start: 20170626
  11. ALBIS [Concomitant]
     Active Substance: BISMUTH SUBCITRATE\RANITIDINE HYDROCHLORIDE\SUCRALFATE
     Indication: HAEMORRHAGE PROPHYLAXIS
  12. MAXIPIME [Concomitant]
     Active Substance: CEFEPIME HYDROCHLORIDE
     Indication: PYREXIA
     Dosage: 2 GRAM, TID
     Route: 042
     Dates: start: 20170626, end: 20170628
  13. VENTOLIN [Concomitant]
     Active Substance: ALBUTEROL SULFATE
     Indication: CHRONIC OBSTRUCTIVE PULMONARY DISEASE
     Dosage: 2.5 MILLIGRAM, QID
     Dates: start: 20170627, end: 20170627
  14. ALBIS [Concomitant]
     Active Substance: BISMUTH SUBCITRATE\RANITIDINE HYDROCHLORIDE\SUCRALFATE
     Indication: GASTRITIS PROPHYLAXIS
     Dosage: 1 TABLET, QD
     Route: 048
     Dates: start: 20170627, end: 20170630
  15. VANCOMYCIN HYDROCHLORIDE. [Concomitant]
     Active Substance: VANCOMYCIN HYDROCHLORIDE
     Indication: SEPSIS
     Dosage: 1 GRAM, QD
     Route: 042
     Dates: start: 20170627
  16. POSACONAZOLE [Suspect]
     Active Substance: POSACONAZOLE
     Indication: ANTIFUNGAL PROPHYLAXIS
     Dosage: 300 MILLIGRAM, BID
     Route: 048
     Dates: start: 20170628, end: 20170628
  17. CODIPINE [Concomitant]
     Active Substance: BENIDIPINE HYDROCHLORIDE
     Indication: HYPERTENSION
     Dosage: 4 MILLIGRAM, QD
     Route: 048
     Dates: start: 20170626, end: 20170628
  18. MEPERIDINE HYDROCHLORIDE. [Concomitant]
     Active Substance: MEPERIDINE HYDROCHLORIDE
     Indication: PYREXIA
     Dosage: 25 MILLIGRAM, QD (STRENGTH: 50 MG/ML)
     Dates: start: 20170627, end: 20170627
  19. LEVOFEXIN [Concomitant]
     Active Substance: LEVOFLOXACIN
     Indication: PYREXIA
     Dosage: 750 MG, QD
     Route: 042
     Dates: start: 20170626
  20. ALLOPURINOL. [Concomitant]
     Active Substance: ALLOPURINOL
     Indication: HYPERURICAEMIA
     Dosage: 200 MILLIGRAM, QD
     Route: 048
     Dates: start: 20170626

REACTIONS (3)
  - Musculoskeletal pain [Recovered/Resolved]
  - Acute respiratory failure [Recovered/Resolved]
  - Hepatitis [Recovered/Resolved]

NARRATIVE: CASE EVENT DATE: 20170629
